FAERS Safety Report 7212367-X (Version None)
Quarter: 2011Q1

REPORT INFORMATION
  Report Type: 
  Country: None (occurrence: None)
  Receive Date: 20110106
  Receipt Date: 20101224
  Transmission Date: 20110831
  Serious: Yes (Other)
  Sender: FDA-Public Use
  Company Number: JP-BRISTOL-MYERS SQUIBB COMPANY-15115116

PATIENT
  Age: 26 Year
  Sex: Female
  Weight: 42 kg

DRUGS (1)
  1. KENACORT [Suspect]
     Indication: KELOID SCAR
     Dosage: TILL 21MAY2010: THREE TIMES. ON 21MAY2010: RECEIVED KENACORT A 0.1 CC ON BACK ROA: INTRACUTANEOUS
     Route: 058
     Dates: start: 20090907, end: 20100521

REACTIONS (2)
  - CONVULSION [None]
  - LOSS OF CONSCIOUSNESS [None]
